FAERS Safety Report 23344129 (Version 4)
Quarter: 2024Q1

REPORT INFORMATION
  Report Type: Report from Study
  Country: US (occurrence: US)
  Receive Date: 20231227
  Receipt Date: 20240303
  Transmission Date: 20240409
  Serious: Yes (Hospitalization)
  Sender: FDA-Public Use
  Company Number: US-ABBVIE-5503757

PATIENT
  Sex: Male
  Weight: 79 kg

DRUGS (10)
  1. DUOPA [Suspect]
     Active Substance: CARBIDOPA\LEVODOPA
     Indication: Parkinson^s disease
     Dosage: 4.63-20 MG/ML, SUSPENSION 6ML/HOUR , ENTERAL 30, MD: 10?5 ML DURING DAY AND 4 TO 4.5 ML DURING NI...
     Route: 050
  2. DUOPA [Suspect]
     Active Substance: CARBIDOPA\LEVODOPA
     Dosage: ADMINISTER CONTENTS OF 2 CASSETTE VIA PEG-J CONTINUOUSLY EACH DAY. MORNING DOSE: 0 ML, CONTINUOUS...
     Route: 050
     Dates: start: 20230901
  3. CLONAZEPAM [Concomitant]
     Active Substance: CLONAZEPAM
     Indication: Product used for unknown indication
     Dosage: FORM STRENGTH: 0.5 MG
     Route: 048
  4. PRAMIPEXOLE DIHYDROCHLORIDE [Concomitant]
     Active Substance: PRAMIPEXOLE DIHYDROCHLORIDE
     Indication: Product used for unknown indication
     Dosage: TIME INTERVAL: 0.33333333 DAYS: FORM STRENGTH: 0.5 MG
     Route: 048
  5. ROSUVASTATIN CALCIUM [Concomitant]
     Active Substance: ROSUVASTATIN CALCIUM
     Indication: Blood cholesterol
     Dosage: FORM STRENGTH: 10 MG
     Route: 048
  6. DHIVY [Concomitant]
     Active Substance: CARBIDOPA\LEVODOPA
     Indication: Product used for unknown indication
     Dosage: TIME INTERVAL: 0.33333333 DAYS: 25-100 MG 1 TABLET AS NEEDED
     Route: 048
  7. RYTARY [Suspect]
     Active Substance: CARBIDOPA\LEVODOPA
     Indication: Product used for unknown indication
     Dosage: TIME INTERVAL: 0.14285714 DAYS: 48.75-195 MG EXTENDED RELEASE 1 CAPSULE
     Route: 048
  8. RYTARY [Suspect]
     Active Substance: CARBIDOPA\LEVODOPA
     Indication: Product used for unknown indication
     Dosage: TIME INTERVAL: 0.14285714 DAYS: 23.75-95 MG
     Route: 048
  9. SINEMET [Concomitant]
     Active Substance: CARBIDOPA\LEVODOPA
     Indication: Product used for unknown indication
  10. CARBIDOPA\LEVODOPA [Concomitant]
     Active Substance: CARBIDOPA\LEVODOPA
     Indication: Product used for unknown indication
     Dosage: 25-100 MG?1 TABLET AS NEEDED DISSOLVE IN COKE OR SPRITE
     Route: 048

REACTIONS (18)
  - Psychotic disorder [Unknown]
  - Delusion [Unknown]
  - Reduced facial expression [Unknown]
  - Abdominal pain upper [Unknown]
  - Hallucination [Recovered/Resolved]
  - Bradykinesia [Unknown]
  - Freezing phenomenon [Unknown]
  - Anxiety [Unknown]
  - Dysphonia [Unknown]
  - Panic attack [Unknown]
  - Gait disturbance [Unknown]
  - Muscle spasms [Unknown]
  - Poor quality sleep [Unknown]
  - Speech disorder [Unknown]
  - Dysphagia [Unknown]
  - Mobility decreased [Unknown]
  - Drug ineffective [Unknown]
  - Hospitalisation [Unknown]

NARRATIVE: CASE EVENT DATE: 20230101
